FAERS Safety Report 10026736 (Version 3)
Quarter: 2014Q2

REPORT INFORMATION
  Report Type: Spontaneous
  Country: US (occurrence: US)
  Receive Date: 20140321
  Receipt Date: 20140625
  Transmission Date: 20141212
  Serious: Yes (Hospitalization, Other)
  Sender: FDA-Public Use
  Company Number: US-AMGEN-USASP2014019040

PATIENT
  Age: 54 Year
  Sex: Female
  Weight: 131.52 kg

DRUGS (14)
  1. ENBREL [Suspect]
     Indication: PRODUCT USED FOR UNKNOWN INDICATION
     Dosage: 50 MG, QWK
     Route: 058
  2. METHOTREXATE [Suspect]
     Indication: PRODUCT USED FOR UNKNOWN INDICATION
     Dosage: 2.5 MG, UNK
     Route: 065
  3. GABAPENTIN [Concomitant]
     Dosage: 400 MG, UNK
  4. METFORMIN [Concomitant]
     Dosage: 500 MG, UNK
  5. LISINOPRIL [Concomitant]
     Dosage: 10 MG, UNK
  6. TUMS                               /00193601/ [Concomitant]
     Dosage: 500 MG, UNK
  7. LIDODERM [Concomitant]
     Dosage: 5 %, UNK DIS
  8. VITAMIN D                          /00107901/ [Concomitant]
     Dosage: 1000 UNIT, UNK
  9. LORATADIN [Concomitant]
     Dosage: 10 MG, UNK
  10. AMOXICILLIN [Concomitant]
     Dosage: 250 MG, UNK
  11. RANITIDINE [Concomitant]
     Dosage: 150 MG, UNK
  12. SULFASALAZIN [Concomitant]
     Dosage: 500 MG, UNK
  13. TYLENOL                            /00020001/ [Concomitant]
     Dosage: 325 MG, UNK
  14. VOLTAREN                           /00372301/ [Concomitant]
     Dosage: UNK, 1 %

REACTIONS (11)
  - Hypotension [Unknown]
  - Dehydration [Unknown]
  - Viral infection [Unknown]
  - Renal failure [Unknown]
  - Infection [Unknown]
  - Nausea [Unknown]
  - Vomiting [Unknown]
  - Sinusitis [Unknown]
  - Peripheral swelling [Unknown]
  - Weight increased [Unknown]
  - Nasopharyngitis [Unknown]
